FAERS Safety Report 8785744 (Version 2)
Quarter: 2012Q4

REPORT INFORMATION
  Report Type: 
  Country: FR (occurrence: FR)
  Receive Date: 20120914
  Receipt Date: 20121120
  Transmission Date: 20130627
  Serious: Yes (Other)
  Sender: FDA-Public Use
  Company Number: FR-SANOFI-AVENTIS-2012SA064593

PATIENT
  Age: 51 Year
  Sex: Female
  Weight: 52 kg

DRUGS (4)
  1. PLAQUENIL [Suspect]
     Indication: LUPUS SYNDROME
     Route: 048
     Dates: start: 201201
  2. DUPHASTON [Concomitant]
     Dates: start: 20120609
  3. ESTREVA [Concomitant]
     Dates: start: 20120609
  4. LEVOTHYROX [Concomitant]
     Dosage: strength: 25mcg
     Dates: start: 201201

REACTIONS (2)
  - Haemorrhage [Not Recovered/Not Resolved]
  - Metrorrhagia [Not Recovered/Not Resolved]
